FAERS Safety Report 10714674 (Version 1)
Quarter: 2015Q1

REPORT INFORMATION
  Report Type: Report from Study
  Country: NL (occurrence: NL)
  Receive Date: 20150115
  Receipt Date: 20150115
  Transmission Date: 20150721
  Serious: Yes (Death)
  Sender: FDA-Public Use
  Company Number: NL-ABBVIE-15P-114-1332778-00

PATIENT
  Age: 90 Year
  Sex: Male
  Weight: 75 kg

DRUGS (1)
  1. LUCRIN DEPOT (LEUPRORELINE) [Suspect]
     Active Substance: LEUPROLIDE ACETATE
     Indication: PROSTATE CANCER
     Route: 058
     Dates: start: 20130619, end: 20131015

REACTIONS (1)
  - Death [Fatal]

NARRATIVE: CASE EVENT DATE: 20140329
